FAERS Safety Report 4594067-8 (Version None)
Quarter: 2005Q1

REPORT INFORMATION
  Report Type: 
  Country: None (occurrence: None)
  Receive Date: 20050301
  Receipt Date: 20050218
  Transmission Date: 20050727
  Serious: Yes (Other)
  Sender: FDA-Public Use
  Company Number: US-MERCK-0502USA02426

PATIENT

DRUGS (1)
  1. VIOXX [Suspect]
     Route: 048
     Dates: start: 20040601, end: 20040101

REACTIONS (1)
  - CARDIAC ARREST [None]
